FAERS Safety Report 5283979-8 (Version None)
Quarter: 2007Q1

REPORT INFORMATION
  Report Type: 
  Country: None (occurrence: None)
  Receive Date: 20070327
  Receipt Date: 20070315
  Transmission Date: 20070707
  Serious: Yes (Hospitalization)
  Sender: FDA-Public Use
  Company Number: T200700322

PATIENT
  Age: 39 Year
  Sex: Female

DRUGS (1)
  1. PHOSPHOCOL P32 [Suspect]
     Indication: RADIOTHERAPY
     Dosage: 15 MCI, WITH 500ML NORMAL SALINE, SINGLE, INTRAPERITONEAL
     Route: 033

REACTIONS (15)
  - ABDOMINAL PAIN [None]
  - ADHESION [None]
  - ANGIOSCLEROSIS [None]
  - DIARRHOEA [None]
  - DYSURIA [None]
  - FATIGUE [None]
  - FIBROSIS [None]
  - GASTROINTESTINAL NECROSIS [None]
  - HYDRONEPHROSIS [None]
  - NAUSEA [None]
  - OVARIAN EPITHELIAL CANCER [None]
  - PYREXIA [None]
  - SMALL INTESTINAL OBSTRUCTION [None]
  - URETERIC OBSTRUCTION [None]
  - VAGINAL CELLULITIS [None]
